FAERS Safety Report 11061543 (Version 19)
Quarter: 2022Q2

REPORT INFORMATION
  Report Type: Spontaneous
  Country: US (occurrence: US)
  Receive Date: 20150424
  Receipt Date: 20220616
  Transmission Date: 20220720
  Serious: Yes (Hospitalization, Other)
  Sender: FDA-Public Use
  Company Number: US-PFIZER INC-2015135782

PATIENT
  Age: 60 Year
  Sex: Female

DRUGS (27)
  1. PREMARIN [Suspect]
     Active Substance: ESTROGENS, CONJUGATED
     Indication: Vaginal infection
     Dosage: 2 G, 3 TIMES EVERY WEEK
     Route: 067
     Dates: start: 2014
  2. PREMARIN [Suspect]
     Active Substance: ESTROGENS, CONJUGATED
     Dosage: 0.5 DF (0.5 APPLICATOR(S)FUL), DAILY
     Route: 048
  3. PREMARIN [Suspect]
     Active Substance: ESTROGENS, CONJUGATED
     Dosage: 4 G, 3X A WEEK
  4. PREMARIN [Suspect]
     Active Substance: ESTROGENS, CONJUGATED
     Dosage: UNK, DAILY
     Route: 067
  5. PREMARIN [Suspect]
     Active Substance: ESTROGENS, CONJUGATED
     Dosage: 2 G, 2X/WEEK
  6. PREMARIN [Suspect]
     Active Substance: ESTROGENS, CONJUGATED
     Dosage: 1 G, DAILY
     Route: 067
  7. FLONASE [Concomitant]
     Active Substance: FLUTICASONE PROPIONATE
     Dosage: 2 SPRAYS IN EACH NOSTRIL
     Route: 045
  8. VITAMIN B12 [Concomitant]
     Active Substance: CYANOCOBALAMIN
     Dosage: 1 DF, DAILY
  9. PROAIR HFA [Concomitant]
     Active Substance: ALBUTEROL SULFATE
     Dosage: 2 PUFF BY INHALATION ROUTE EVERY 4 - 6 HOURS, AS NEEDED
     Route: 045
  10. FAMOTIDINE [Concomitant]
     Active Substance: FAMOTIDINE
     Dosage: 40 MG, 3X/DAY
     Route: 048
  11. SYNTHROID [Concomitant]
     Active Substance: LEVOTHYROXINE SODIUM
     Dosage: 50 UG, DAILY
     Route: 048
  12. TEMOVATE [Concomitant]
     Active Substance: CLOBETASOL PROPIONATE
     Dosage: 0.05 %, 2X/DAY (A THIN LAYERTO THE AFFECTED AREA)
     Route: 061
  13. CULTURELLE [Concomitant]
     Active Substance: LACTOBACILLUS RHAMNOSUS
     Dosage: 1 DF, DAILY
  14. VITAMIN B12 [Concomitant]
     Active Substance: CYANOCOBALAMIN
     Dosage: 1 DF, DAILY
  15. LASIX [Concomitant]
     Active Substance: FUROSEMIDE
     Dosage: 10 MG, DAILY
     Route: 048
  16. METOPROLOL TARTRATE [Concomitant]
     Active Substance: METOPROLOL TARTRATE
     Dosage: 50 MG, 2X/DAY (WITH MEALS)
     Route: 048
  17. MECLIZINE [Concomitant]
     Active Substance: MECLIZINE HYDROCHLORIDE
     Dosage: 25 MG, AS NEEDED (3 TIMES EVERY DAY)
     Route: 048
  18. HYDROCODONE BITARTRATE AND ACETAMINOPHEN [Concomitant]
     Active Substance: ACETAMINOPHEN\HYDROCODONE BITARTRATE
     Indication: Pain
     Dosage: 1 DF, AS NEEDED (EVERY 4 HOURS)
     Route: 048
  19. FOLIC ACID [Concomitant]
     Active Substance: FOLIC ACID
     Dosage: 1 MG, DAILY
     Route: 048
  20. VALIUM [Concomitant]
     Active Substance: DIAZEPAM
     Dosage: 5 MG, AS NEEDED (3 TIMES DAILY)
     Route: 048
  21. ACCUPRIL [Concomitant]
     Active Substance: QUINAPRIL HYDROCHLORIDE
     Indication: Blood pressure abnormal
     Dosage: 10 MG, 2X/DAY (1 AM + 1 PM)
     Route: 048
  22. ACCUPRIL [Concomitant]
     Active Substance: QUINAPRIL HYDROCHLORIDE
     Dosage: 20 MG, 2X/DAY (1 AM + 1 PM)
     Route: 048
  23. VITAMIN D3 [Concomitant]
     Active Substance: CHOLECALCIFEROL
     Dosage: 1000 IU, DAILY
     Route: 048
  24. DIFLUCAN [Concomitant]
     Active Substance: FLUCONAZOLE
     Indication: Fungal infection
     Dosage: 1 DF (1 TABLET OF 100 MG), DAILY (AS NEEDED)
     Route: 048
  25. DIFLUCAN [Concomitant]
     Active Substance: FLUCONAZOLE
     Dosage: 1 DF (1 TABLET OF 50 MG), DAILY (AS NEEDED)
     Route: 048
  26. ALDACTONE [Concomitant]
     Active Substance: SPIRONOLACTONE
     Indication: Polyuria
     Dosage: 1 DF (1 TABLET), DAILY
     Route: 048
  27. ALDACTONE [Concomitant]
     Active Substance: SPIRONOLACTONE
     Dosage: 25 MG, DAILY

REACTIONS (9)
  - Illness [Unknown]
  - Infection [Unknown]
  - Seizure [Unknown]
  - Diverticulitis [Unknown]
  - Malaise [Unknown]
  - Off label use [Unknown]
  - Off label use [Unknown]
  - Off label use [Unknown]
  - Product prescribing error [Unknown]

NARRATIVE: CASE EVENT DATE: 20140101
